FAERS Safety Report 11999060 (Version 1)
Quarter: 2016Q1

REPORT INFORMATION
  Report Type: Spontaneous
  Country: US (occurrence: None)
  Receive Date: 20160202
  Receipt Date: 20160202
  Transmission Date: 20160526
  Serious: No
  Sender: FDA-Public Use
  Company Number: None

PATIENT
  Age: 2 Year
  Sex: Male

DRUGS (1)
  1. AMOXICILLIN SUSPENSION 400 MG/5 ML SANDOZ [Suspect]
     Active Substance: AMOXICILLIN
     Indication: OTITIS MEDIA
     Dates: start: 20160121, end: 20160130

REACTIONS (1)
  - Drug hypersensitivity [None]

NARRATIVE: CASE EVENT DATE: 20160130
